FAERS Safety Report 21043208 (Version 7)
Quarter: 2022Q3

REPORT INFORMATION
  Report Type: Report from Study
  Country: CH (occurrence: None)
  Receive Date: 20220705
  Receipt Date: 20220818
  Transmission Date: 20221027
  Serious: Yes (Hospitalization)
  Sender: FDA-Public Use
  Company Number: CH-Eisai Medical Research-EC-2022-118292

PATIENT
  Age: 80 Year
  Sex: Female
  Weight: 63.2 kg

DRUGS (9)
  1. LENVATINIB [Suspect]
     Active Substance: LENVATINIB
     Indication: Renal cell carcinoma
     Dosage: STARTING DOSE AT 20 MG, FLUCTUATED DOSAGE
     Route: 048
     Dates: start: 20220322, end: 20220624
  2. LENVATINIB [Suspect]
     Active Substance: LENVATINIB
     Route: 048
     Dates: start: 20220625, end: 20220625
  3. BELZUTIFAN [Suspect]
     Active Substance: BELZUTIFAN
     Indication: Renal cell carcinoma
     Dosage: STARTING DOSE AT 120 MG, FLUCTUATED DOSAGE
     Route: 048
     Dates: start: 20220322, end: 20220625
  4. ASPIRIN [Concomitant]
     Active Substance: ASPIRIN
     Dates: start: 20150620
  5. AMLODIPINE BESYLATE [Concomitant]
     Active Substance: AMLODIPINE BESYLATE
     Dates: start: 20170511
  6. CANNABIDIOL [Concomitant]
     Active Substance: CANNABIDIOL
     Dates: start: 20220203
  7. METAMIZOLE [Concomitant]
     Active Substance: METAMIZOLE
     Dates: start: 20220417
  8. LEVOTHYROXINE [Concomitant]
     Active Substance: LEVOTHYROXINE
     Dates: start: 20220412
  9. VALSARTAN [Concomitant]
     Active Substance: VALSARTAN
     Dates: start: 20170511

REACTIONS (1)
  - Hypertransaminasaemia [Recovered/Resolved]

NARRATIVE: CASE EVENT DATE: 20220627
